FAERS Safety Report 5127508-8 (Version None)
Quarter: 2006Q4

REPORT INFORMATION
  Report Type: 
  Country: None (occurrence: None)
  Receive Date: 20061010
  Receipt Date: 20060926
  Transmission Date: 20070319
  Serious: Yes (Death)
  Sender: FDA-Public Use
  Company Number: 2006116618

PATIENT
  Age: 60 Year
  Sex: Male
  Weight: 55 kg

DRUGS (11)
  1. SUTENT [Suspect]
     Indication: RENAL CELL CARCINOMA STAGE UNSPECIFIED
     Dosage: 50 MG (50 MG, DAILY), ORAL; 37.5 MG (12.5 MG, DAILY), ORAL
     Route: 048
     Dates: start: 20060704, end: 20060731
  2. SUTENT [Suspect]
     Indication: RENAL CELL CARCINOMA STAGE UNSPECIFIED
     Dosage: 50 MG (50 MG, DAILY), ORAL; 37.5 MG (12.5 MG, DAILY), ORAL
     Route: 048
     Dates: start: 20060904, end: 20060918
  3. SOLDESAM           (DEXAMETHASONE SODIUM PHOSPHATE) [Concomitant]
  4. OMEPRAZOLE [Concomitant]
  5. DOMPERIDONE                    (DOMPERIDONE) [Concomitant]
  6. MYCOSTATIN [Concomitant]
  7. RAMIPRIL [Concomitant]
  8. CARDIOASPIRINA         (ACETYLSALICYLIC ACID) [Concomitant]
  9. TRAMADOL HCL [Concomitant]
  10. ACETAMINOPHEN [Concomitant]
  11. DELTACORTENE                (PREDNISONE) [Concomitant]

REACTIONS (1)
  - DEATH [None]
